FAERS Safety Report 5126489-0 (Version None)
Quarter: 2006Q4

REPORT INFORMATION
  Report Type: 
  Country: None (occurrence: None)
  Receive Date: 20061010
  Receipt Date: 20060927
  Transmission Date: 20070319
  Serious: Yes (Hospitalization, Other)
  Sender: FDA-Public Use
  Company Number: 2006099155

PATIENT
  Age: 45 Year
  Sex: Female
  Weight: 55 kg

DRUGS (10)
  1. LYRICA [Suspect]
     Indication: ANXIETY
     Dosage: 50 MG (50 MG, 1 IN 1 D)
     Dates: start: 20060626, end: 20060601
  2. LYRICA [Suspect]
     Indication: BACK PAIN
     Dosage: 50 MG (50 MG, 1 IN 1 D)
     Dates: start: 20060626, end: 20060601
  3. LYRICA [Suspect]
     Indication: MYOFASCIAL PAIN SYNDROME
     Dosage: 50 MG (50 MG, 1 IN 1 D)
     Dates: start: 20060626, end: 20060601
  4. LYRICA [Suspect]
     Indication: SLEEP DISORDER
     Dosage: 50 MG (50 MG, 1 IN 1 D)
     Dates: start: 20060626, end: 20060601
  5. REQUIP [Concomitant]
  6. TRAMADOL HCL [Concomitant]
  7. TOPROL-XL [Concomitant]
  8. WELLBUTRIN [Concomitant]
  9. ZANAFLEX [Concomitant]
  10. COMBIVENT [Concomitant]

REACTIONS (4)
  - BLOOD TRIGLYCERIDES INCREASED [None]
  - CORONARY ARTERY DISEASE [None]
  - DRUG HYPERSENSITIVITY [None]
  - OSTEOPOROSIS [None]
